FAERS Safety Report 9412112 (Version 1)
Quarter: 2013Q3

REPORT INFORMATION
  Report Type: Spontaneous
  Country: US (occurrence: None)
  Receive Date: 20130719
  Receipt Date: 20130719
  Transmission Date: 20140515
  Serious: Yes (Life-Threatening)
  Sender: FDA-Public Use
  Company Number: None

PATIENT
  Age: 83 Year
  Sex: Male
  Weight: 75.6 kg

DRUGS (1)
  1. FERAHEME [Suspect]
     Route: 042
     Dates: start: 20130716, end: 20130716

REACTIONS (4)
  - Chest discomfort [None]
  - Pallor [None]
  - Cardio-respiratory arrest [None]
  - Anaphylactic reaction [None]
